FAERS Safety Report 5443625-7 (Version None)
Quarter: 2007Q3

REPORT INFORMATION
  Report Type: 
  Country: None (occurrence: None)
  Receive Date: 20070905
  Receipt Date: 20070831
  Transmission Date: 20080115
  Serious: Yes (Hospitalization)
  Sender: FDA-Public Use
  Company Number: PHRM2007FR02110

PATIENT
  Age: 63 Year
  Sex: Male

DRUGS (4)
  1. HYDREA [Concomitant]
     Indication: CHRONIC MYELOID LEUKAEMIA
  2. CORDARONE [Concomitant]
     Indication: ATRIAL FIBRILLATION
     Dates: start: 20050101
  3. GLEEVEC [Suspect]
     Indication: CHRONIC MYELOID LEUKAEMIA
     Dosage: 600 MG DAILY
     Route: 048
     Dates: start: 20010701, end: 20020101
  4. GLEEVEC [Suspect]
     Dosage: 600 MG DAILY
     Route: 048
     Dates: start: 20050101

REACTIONS (4)
  - ADENOCARCINOMA [None]
  - FREE PROSTATE-SPECIFIC ANTIGEN DECREASED [None]
  - PROSTATE CANCER [None]
  - PROSTATIC SPECIFIC ANTIGEN INCREASED [None]
